FAERS Safety Report 13754147 (Version 1)
Quarter: 2017Q3

REPORT INFORMATION
  Report Type: Spontaneous
  Country: SE (occurrence: SE)
  Receive Date: 20170714
  Receipt Date: 20170714
  Transmission Date: 20171127
  Serious: Yes (Other)
  Sender: FDA-Public Use
  Company Number: SE-TEVA-785166ISR

PATIENT

DRUGS (3)
  1. SALAZOPYRIN EN [Suspect]
     Active Substance: SULFASALAZINE
     Route: 065
  2. OMEPRAZOLE. [Suspect]
     Active Substance: OMEPRAZOLE
     Route: 065
  3. ORUDIS [Suspect]
     Active Substance: KETOPROFEN
     Route: 065

REACTIONS (2)
  - Exposure via father [Unknown]
  - Limb reduction defect [Unknown]
